FAERS Safety Report 6442683-0 (Version None)
Quarter: 2009Q4

REPORT INFORMATION
  Report Type: 
  Country: None (occurrence: None)
  Receive Date: 20091117
  Receipt Date: 20091110
  Transmission Date: 20100525
  Serious: Yes (Life-Threatening, Hospitalization)
  Sender: FDA-Public Use
  Company Number: US-CELGENEUS-163-21880-09110792

PATIENT
  Sex: Female
  Weight: 46.2 kg

DRUGS (20)
  1. REVLIMID [Suspect]
     Indication: OVARIAN CANCER
     Route: 048
     Dates: start: 20090831
  2. DOXIL [Suspect]
     Indication: OVARIAN CANCER
     Route: 051
     Dates: start: 20090831
  3. OXYMETAZOLINE HCL [Suspect]
     Indication: DRUG USE FOR UNKNOWN INDICATION
     Route: 065
  4. MUCINEX [Concomitant]
     Indication: RESPIRATORY TRACT CONGESTION
     Route: 048
  5. CLARITIN [Concomitant]
     Indication: DRUG USE FOR UNKNOWN INDICATION
     Route: 048
  6. SUDAFED 12 HOUR [Concomitant]
     Indication: DRUG USE FOR UNKNOWN INDICATION
     Route: 048
  7. LORAZEPAM [Concomitant]
     Indication: DRUG USE FOR UNKNOWN INDICATION
     Route: 065
  8. LORAZEPAM [Concomitant]
     Route: 048
  9. PAREGORIC [Concomitant]
     Indication: DRUG USE FOR UNKNOWN INDICATION
     Dosage: 2MG/5ML
     Route: 065
  10. NALTREXONE HYDROCHLORIDE [Concomitant]
     Indication: DRUG USE FOR UNKNOWN INDICATION
     Route: 048
  11. ZOLPIDEM [Concomitant]
     Route: 048
  12. TEMAZEPAM [Concomitant]
     Indication: DRUG USE FOR UNKNOWN INDICATION
     Route: 048
  13. OPIUM TINCTURE [Concomitant]
     Indication: DRUG USE FOR UNKNOWN INDICATION
     Route: 065
  14. CHOLESTYRAMINE [Concomitant]
     Indication: DRUG USE FOR UNKNOWN INDICATION
     Route: 048
  15. DEXTROMETHORPHAN HYDROBROMIDE [Concomitant]
     Indication: COUGH
     Route: 065
     Dates: start: 20091101
  16. DILAUDID [Concomitant]
     Indication: PAIN
     Route: 065
  17. TYLENOL (CAPLET) [Concomitant]
     Indication: PAIN
     Route: 065
  18. LOVENOX [Concomitant]
     Route: 065
  19. RANITIDINE [Concomitant]
     Indication: PROPHYLAXIS
     Route: 065
  20. CIPROFLOXACIN [Concomitant]
     Indication: DRUG USE FOR UNKNOWN INDICATION

REACTIONS (2)
  - FEBRILE NEUTROPENIA [None]
  - PANCYTOPENIA [None]
